FAERS Safety Report 9285454 (Version 2)
Quarter: 2013Q2

REPORT INFORMATION
  Report Type: Spontaneous
  Country: US (occurrence: US)
  Receive Date: 20130513
  Receipt Date: 20130513
  Transmission Date: 20140414
  Serious: No
  Sender: FDA-Public Use
  Company Number: US-PFIZER INC-2004101355

PATIENT
  Sex: Male

DRUGS (4)
  1. MOTRIN MIGRAINE PAIN [Suspect]
     Indication: PAIN
     Dosage: 600 MG, 2 IN 1 DAY
     Route: 048
     Dates: start: 20041107
  2. BENZYLPENICILLIN SODIUM [Concomitant]
     Dosage: UNK
     Route: 048
     Dates: start: 20041107
  3. PSEUDOEPHEDRINE HYDROCHLORIDE [Concomitant]
     Dosage: 2 DF, QD
     Dates: start: 20041107
  4. DRISTAN NASAL SPRAY [Concomitant]
     Dosage: 1 DOSE, 1X/DAY
     Dates: start: 20041107

REACTIONS (2)
  - Hyperhidrosis [Recovered/Resolved]
  - Body temperature decreased [Recovered/Resolved]
